FAERS Safety Report 14292127 (Version 1)
Quarter: 2017Q4

REPORT INFORMATION
  Report Type: Spontaneous
  Country: US (occurrence: US)
  Receive Date: 20171215
  Receipt Date: 20171215
  Transmission Date: 20180321
  Serious: Yes (Hospitalization)
  Sender: FDA-Public Use
  Company Number: US-NOVOPROD-521945

PATIENT
  Sex: Female

DRUGS (1)
  1. LEVEMIR [Suspect]
     Active Substance: INSULIN DETEMIR
     Indication: PRODUCT USED FOR UNKNOWN INDICATION
     Dosage: 120 U, QD
     Route: 058
     Dates: start: 2001

REACTIONS (5)
  - Angioedema [Unknown]
  - Blood glucagon increased [Unknown]
  - Blood glucose increased [Unknown]
  - Blood insulin increased [Unknown]
  - Feeling abnormal [Unknown]
